FAERS Safety Report 4661952-8 (Version None)
Quarter: 2005Q2

REPORT INFORMATION
  Report Type: 
  Country: None (occurrence: None)
  Receive Date: 20050516
  Receipt Date: 20041209
  Transmission Date: 20051028
  Serious: Yes (Hospitalization)
  Sender: FDA-Public Use
  Company Number: FR-RB-1173-2004

PATIENT
  Age: 40 Year
  Sex: Male
  Weight: 55 kg

DRUGS (7)
  1. BUPRENORPHINE HCL [Suspect]
     Indication: DRUG DEPENDENCE
     Route: 060
  2. BACTRIM [Suspect]
     Indication: OESOPHAGEAL CANDIDIASIS
     Route: 048
  3. RISPERIDONE [Suspect]
     Indication: DYSTHYMIC DISORDER
     Dosage: UNKNOWN
     Route: 048
     Dates: end: 20040211
  4. ZIDOVUDINE [Suspect]
     Indication: HIV INFECTION
     Dosage: UNKNOWN
     Route: 048
     Dates: start: 20040131, end: 20040216
  5. INDINAVIR SULFATE [Suspect]
     Indication: HIV INFECTION
     Route: 048
     Dates: start: 20040131, end: 20040216
  6. RITONAVIR [Suspect]
     Indication: HIV INFECTION
     Route: 048
     Dates: start: 20040131, end: 20040216
  7. FLUCONAZOLE [Concomitant]
     Indication: OESOPHAGEAL CANDIDIASIS
     Dosage: UNKNOWN
     Route: 065

REACTIONS (3)
  - DYSTHYMIC DISORDER [None]
  - ENCEPHALITIS VIRAL [None]
  - PANCYTOPENIA [None]
